FAERS Safety Report 10191555 (Version 1)
Quarter: 2014Q2

REPORT INFORMATION
  Report Type: Spontaneous
  Country: IE (occurrence: IE)
  Receive Date: 20140523
  Receipt Date: 20140523
  Transmission Date: 20141212
  Serious: Yes (Hospitalization, Other)
  Sender: FDA-Public Use
  Company Number: IE-PFIZER INC-2014138560

PATIENT
  Age: 75 Year
  Sex: Male

DRUGS (10)
  1. SUTENT [Suspect]
     Indication: RENAL CELL CARCINOMA
     Dosage: 50 MG, 1X/DAY 4/2 REGIMEN
  2. SUTENT [Suspect]
     Dosage: 37.5 MG, 1X/DAY X 4 WEEKS ON AND 2 WEEKS OFF
     Dates: start: 20120927, end: 20121004
  3. SUTENT [Suspect]
     Dosage: 37.5 MG, 1X/DAY X 4 WEEKS ON AND 2 WEEKS OFF
     Dates: start: 20121031, end: 20130210
  4. SUTENT [Suspect]
     Dosage: 37.5 MG, 14 DAYS ON, 1 WEEK OFF
     Dates: start: 20130211, end: 20130515
  5. SUTENT [Suspect]
     Dosage: 25 MG, 1X/DAY 14 DAYS ON, 1 WEEK OFF
     Dates: start: 20130607
  6. TELMISARTAN [Concomitant]
     Dosage: 40 MG, 1X/DAY
  7. ATORVASTATIN [Concomitant]
     Dosage: 10 MG, 1X/DAY
  8. MOMETASONE FUROATE [Concomitant]
     Dosage: TWICE DAILY
     Route: 045
  9. LEVOCETIRIZINE [Concomitant]
     Dosage: 5 MG, 1X/DAY
  10. BUDESONIDE/FORMOTEROL FUMARATE [Concomitant]
     Dosage: 200/6 UG, TWICE A DAY

REACTIONS (7)
  - Blood pressure increased [Unknown]
  - Blood pressure fluctuation [Unknown]
  - Haemorrhoidal haemorrhage [Unknown]
  - Haemorrhoidal haemorrhage [Unknown]
  - Haemorrhoidal haemorrhage [Unknown]
  - Rectal haemorrhage [Unknown]
  - Gastrooesophageal reflux disease [Unknown]
